FAERS Safety Report 7335560-4 (Version None)
Quarter: 2011Q1

REPORT INFORMATION
  Report Type: 
  Country: None (occurrence: None)
  Receive Date: 20110307
  Receipt Date: 20110304
  Transmission Date: 20110831
  Serious: Yes (Other)
  Sender: FDA-Public Use
  Company Number: JP-PFIZER INC-2011047395

PATIENT
  Sex: Female

DRUGS (1)
  1. HALCION [Suspect]
     Route: 048

REACTIONS (1)
  - NORMAL TENSION GLAUCOMA [None]
